FAERS Safety Report 14925649 (Version 1)
Quarter: 2018Q2

REPORT INFORMATION
  Report Type: Spontaneous
  Country: US (occurrence: US)
  Receive Date: 20180522
  Receipt Date: 20180522
  Transmission Date: 20180711
  Serious: No
  Sender: FDA-Public Use
  Company Number: US-AMAG PHARMACEUTICALS, INC.-AMAG201800833

PATIENT

DRUGS (1)
  1. INTRAROSA [Suspect]
     Active Substance: PRASTERONE
     Indication: DYSPAREUNIA
     Dosage: 6.5 MG, QD
     Route: 067
     Dates: start: 2018

REACTIONS (1)
  - Breast tenderness [Not Recovered/Not Resolved]

NARRATIVE: CASE EVENT DATE: 2018
